FAERS Safety Report 14942542 (Version 3)
Quarter: 2019Q4

REPORT INFORMATION
  Report Type: Spontaneous
  Country: CA (occurrence: CA)
  Receive Date: 20180528
  Receipt Date: 20191001
  Transmission Date: 20200122
  Serious: Yes (Other)
  Sender: FDA-Public Use
  Company Number: CA-AUROBINDO-AUR-APL-2018-027745

PATIENT
  Age: 89 Year
  Sex: Female

DRUGS (6)
  1. BUPIVACAINE. [Concomitant]
     Active Substance: BUPIVACAINE
     Indication: PRODUCT USED FOR UNKNOWN INDICATION
     Dosage: 1 MILLIGRAM PER MILLILITRE
     Route: 065
  2. EPINEPHRINE. [Concomitant]
     Active Substance: EPINEPHRINE
     Indication: PRODUCT USED FOR UNKNOWN INDICATION
     Dosage: A TEST DOSE OF 3 ML OF LIDOCAINE 2% WITH EPINEPHRINE 5 ?G/ML ()
     Route: 065
  3. HYDROMORPHONE [Concomitant]
     Active Substance: HYDROMORPHONE
     Indication: PRODUCT USED FOR UNKNOWN INDICATION
     Dosage: 10 ?G/ML WAS INITIATED DURING THE PROCEDURE AND MAINTAINED AT 6 ML/H, INFUSION ()
     Route: 065
  4. HEPARIN [Suspect]
     Active Substance: HEPARIN SODIUM
     Indication: THROMBOSIS PROPHYLAXIS
     Dosage: 5000 U
     Route: 058
  5. LIDOCAINE. [Concomitant]
     Active Substance: LIDOCAINE
     Indication: PRODUCT USED FOR UNKNOWN INDICATION
     Dosage: A TEST DOSE OF 3 ML OF LIDOCAINE 2% WITH EPINEPHRINE 5 ?G/ML
     Route: 065
  6. ESCITALOPRAM [Suspect]
     Active Substance: ESCITALOPRAM OXALATE
     Indication: PRODUCT USED FOR UNKNOWN INDICATION
     Dosage: UNK
     Route: 065

REACTIONS (9)
  - Oedema [Unknown]
  - Hypotension [Unknown]
  - Platelet aggregation inhibition [Unknown]
  - Hypovolaemia [Unknown]
  - Extradural haematoma [Unknown]
  - Spinal cord compression [Unknown]
  - Paralysis [Recovering/Resolving]
  - Platelet count decreased [Unknown]
  - Haemorrhage [Unknown]
